FAERS Safety Report 6946889-3 (Version None)
Quarter: 2010Q3

REPORT INFORMATION
  Report Type: 
  Country: None (occurrence: None)
  Receive Date: 20100827
  Receipt Date: 20090817
  Transmission Date: 20110219
  Serious: No
  Sender: FDA-Public Use
  Company Number: US-ABBOTT-09P-163-0592762-00

PATIENT
  Sex: Female
  Weight: 62.652 kg

DRUGS (6)
  1. NIASPAN [Suspect]
     Indication: BLOOD CHOLESTEROL INCREASED
     Route: 048
     Dates: start: 20090601
  2. NIACIN [Suspect]
     Indication: BLOOD CHOLESTEROL INCREASED
     Route: 048
  3. SYNTHROID [Concomitant]
     Indication: HYPOTHYROIDISM
     Route: 048
  4. HYDREA [Concomitant]
     Indication: PLATELET DISORDER
     Dosage: UNKNOWN DOSE
  5. ASPIRIN [Concomitant]
     Indication: PROPHYLAXIS
  6. VITAMIN TAB [Concomitant]
     Indication: VITAMIN SUPPLEMENTATION

REACTIONS (3)
  - DRUG DOSE OMISSION [None]
  - MUSCLE SPASMS [None]
  - MUSCULAR WEAKNESS [None]
